FAERS Safety Report 11575746 (Version 1)
Quarter: 2015Q3

REPORT INFORMATION
  Report Type: Spontaneous
  Country: US (occurrence: US)
  Receive Date: 20150930
  Receipt Date: 20150930
  Transmission Date: 20151125
  Serious: Yes (Other)
  Sender: FDA-Public Use
  Company Number: US-APOTEX-2015AP013003

PATIENT
  Age: 59 Year
  Sex: Male

DRUGS (1)
  1. TAMOXIFEN CITRATE TABLETS USP [Suspect]
     Active Substance: TAMOXIFEN CITRATE
     Indication: CANCER HORMONAL THERAPY
     Route: 065

REACTIONS (1)
  - Embolism venous [Recovering/Resolving]
